FAERS Safety Report 6439466-4 (Version None)
Quarter: 2009Q4

REPORT INFORMATION
  Report Type: 
  Country: None (occurrence: None)
  Receive Date: 20091113
  Receipt Date: 20091110
  Transmission Date: 20100525
  Serious: Yes (Death)
  Sender: FDA-Public Use
  Company Number: HN-JNJFOC-20091103442

PATIENT
  Age: 62 Year
  Sex: Male

DRUGS (1)
  1. DURAGESIC-100 [Suspect]
     Indication: CANCER PAIN

REACTIONS (2)
  - HEPATIC NEOPLASM MALIGNANT [None]
  - RESPIRATORY DEPRESSION [None]
